FAERS Safety Report 18955484 (Version 1)
Quarter: 2021Q1

REPORT INFORMATION
  Report Type: Spontaneous
  Country: US (occurrence: US)
  Receive Date: 20210302
  Receipt Date: 20210302
  Transmission Date: 20210420
  Serious: Yes (Other)
  Sender: FDA-Public Use
  Company Number: US-AMGEN-USASP2021029583

PATIENT
  Age: 62 Year
  Sex: Female

DRUGS (2)
  1. PROLIA [Suspect]
     Active Substance: DENOSUMAB
     Indication: OSTEOPOROSIS POSTMENOPAUSAL
     Dosage: 60 MILLIGRAM, Q6MO
     Route: 065
     Dates: end: 2018
  2. PROLIA [Suspect]
     Active Substance: DENOSUMAB
     Dosage: 60 MILLIGRAM, Q6MO
     Route: 065

REACTIONS (7)
  - Hepatic enzyme increased [Unknown]
  - Loss of consciousness [Unknown]
  - Foot fracture [Unknown]
  - Blood cholesterol increased [Unknown]
  - Lupus-like syndrome [Unknown]
  - Thoracic vertebral fracture [Unknown]
  - Joint dislocation [Unknown]

NARRATIVE: CASE EVENT DATE: 2018
